FAERS Safety Report 25447976 (Version 1)
Quarter: 2025Q2

REPORT INFORMATION
  Report Type: Spontaneous
  Country: IL (occurrence: IL)
  Receive Date: 20250617
  Receipt Date: 20250617
  Transmission Date: 20250716
  Serious: Yes (Life-Threatening)
  Sender: PURDUE
  Company Number: IL-NAPPMUNDI-GBR-2025-0126384

PATIENT
  Age: 33 Year
  Sex: Male

DRUGS (1)
  1. BUTRANS [Suspect]
     Active Substance: BUPRENORPHINE
     Indication: Rehabilitation therapy
     Route: 065
     Dates: start: 20250310, end: 20250410

REACTIONS (9)
  - Diarrhoea [Unknown]
  - Vomiting [Unknown]
  - Dyspnoea [Unknown]
  - Tremor [Unknown]
  - Insomnia [Unknown]
  - Initial insomnia [Unknown]
  - Palpitations [Unknown]
  - Pain [Not Recovered/Not Resolved]
  - Impaired work ability [Unknown]
